FAERS Safety Report 12281627 (Version 1)
Quarter: 2016Q2

REPORT INFORMATION
  Report Type: Spontaneous
  Country: US (occurrence: None)
  Receive Date: 20160418
  Receipt Date: 20160418
  Transmission Date: 20160815
  Serious: No
  Sender: FDA-Public Use
  Company Number: None

PATIENT
  Sex: Female

DRUGS (8)
  1. IBRANCE [Suspect]
     Active Substance: PALBOCICLIB
     Indication: BREAST CANCER
     Route: 048
     Dates: start: 20151106
  2. LOSARTAN. [Concomitant]
     Active Substance: LOSARTAN
  3. KCL [Concomitant]
     Active Substance: POTASSIUM CHLORIDE
  4. AMLODIPINE [Concomitant]
     Active Substance: AMLODIPINE BESYLATE
  5. SIMVASTATIN. [Concomitant]
     Active Substance: SIMVASTATIN
  6. METFORMIN [Concomitant]
     Active Substance: METFORMIN HYDROCHLORIDE
  7. AFINITOR [Concomitant]
     Active Substance: EVEROLIMUS
  8. CALCIUM [Concomitant]
     Active Substance: CALCIUM

REACTIONS (1)
  - Dyspnoea [None]

NARRATIVE: CASE EVENT DATE: 2016
